FAERS Safety Report 8283903-X (Version None)
Quarter: 2012Q2

REPORT INFORMATION
  Report Type: 
  Country: None (occurrence: None)
  Receive Date: 20120413
  Receipt Date: 20120404
  Transmission Date: 20120825
  Serious: Yes (Hospitalization, Other)
  Sender: FDA-Public Use
  Company Number: US-ELI_LILLY_AND_COMPANY-US201204001618

PATIENT
  Sex: Female
  Weight: 67.12 kg

DRUGS (8)
  1. BYETTA [Suspect]
     Dosage: 10 UG, BID
     Route: 058
  2. SYNTHROID [Concomitant]
     Dosage: 88 UG, QD
     Route: 048
     Dates: start: 20110701
  3. AMARYL [Concomitant]
     Dosage: 1 MG, BID
     Route: 048
  4. SYNTHROID [Concomitant]
     Dosage: 112 UG, QD
     Route: 048
  5. HUMALOG [Concomitant]
     Dosage: UNK
  6. BETA BLOCKING AGENTS [Concomitant]
     Dosage: UNK
  7. BYETTA [Suspect]
     Indication: TYPE 2 DIABETES MELLITUS
     Dosage: 5 UG, BID
     Route: 058
  8. METFORMIN HCL [Concomitant]
     Dosage: 850 MG, TID
     Route: 048

REACTIONS (13)
  - THYROTOXIC CRISIS [None]
  - ADRENOCORTICAL INSUFFICIENCY ACUTE [None]
  - HYPERSENSITIVITY [None]
  - SENSATION OF FOREIGN BODY [None]
  - HYPERTHYROIDISM [None]
  - WEIGHT DECREASED [None]
  - SUPRAVENTRICULAR TACHYCARDIA [None]
  - ARRHYTHMIA [None]
  - EXOPHTHALMOS [None]
  - NAUSEA [None]
  - THYROID DISORDER [None]
  - OFF LABEL USE [None]
  - PALPITATIONS [None]
